FAERS Safety Report 9139297 (Version 3)
Quarter: 2013Q2

REPORT INFORMATION
  Report Type: Spontaneous
  Country: US (occurrence: US)
  Receive Date: 20130305
  Receipt Date: 20130412
  Transmission Date: 20140414
  Serious: Yes (Life-Threatening, Hospitalization, Disabling, Congenital Anomaly, Other)
  Sender: FDA-Public Use
  Company Number: US-PFIZER INC-2013074253

PATIENT
  Sex: Male
  Weight: 3 kg

DRUGS (4)
  1. ZOLOFT [Suspect]
     Dosage: UNK
     Route: 064
     Dates: start: 1996
  2. XANAX [Concomitant]
     Dosage: UNK
     Route: 064
     Dates: end: 19991209
  3. SUDAFED [Concomitant]
     Indication: HEADACHE
     Dosage: UNK
     Route: 064
  4. PRENATAL VITAMINS [Concomitant]
     Dosage: UNK
     Route: 064

REACTIONS (31)
  - Foetal exposure during pregnancy [Unknown]
  - Heart disease congenital [Unknown]
  - Ventricular septal defect [Recovered/Resolved]
  - Patent ductus arteriosus [Recovered/Resolved]
  - Atrial septal defect [Recovered/Resolved]
  - Failure to thrive [Unknown]
  - Developmental delay [Unknown]
  - Mitral valve incompetence [Not Recovered/Not Resolved]
  - Tricuspid valve incompetence [Not Recovered/Not Resolved]
  - Tricuspid valve sclerosis [Unknown]
  - Left atrial dilatation [Not Recovered/Not Resolved]
  - Dilatation ventricular [Not Recovered/Not Resolved]
  - Cerebral palsy [Unknown]
  - Pulmonary valve incompetence [Unknown]
  - Pulmonary artery dilatation [Unknown]
  - Respiratory distress [Recovered/Resolved]
  - Von Willebrand^s disease [Unknown]
  - Bundle branch block right [Unknown]
  - Otitis media [Unknown]
  - Gross motor delay [Unknown]
  - Feeding disorder neonatal [Unknown]
  - Cardiomegaly [Unknown]
  - Ventricular hypertrophy [Recovered/Resolved]
  - Cerebrovascular accident [Unknown]
  - Gliosis [Unknown]
  - Central auditory processing disorder [Unknown]
  - Weight gain poor [Unknown]
  - Fine motor delay [Unknown]
  - Motor developmental delay [Unknown]
  - Speech disorder developmental [Unknown]
  - Premature baby [Unknown]
